FAERS Safety Report 7094456-6 (Version None)
Quarter: 2010Q4

REPORT INFORMATION
  Report Type: 
  Country: None (occurrence: None)
  Receive Date: 20101110
  Receipt Date: 20101029
  Transmission Date: 20110411
  Serious: Yes (Hospitalization)
  Sender: FDA-Public Use
  Company Number: PHHY2010TW73357

PATIENT
  Sex: Female
  Weight: 49 kg

DRUGS (1)
  1. NEORAL [Suspect]
     Indication: RENAL TRANSPLANT
     Dosage: 200 MG
     Route: 048
     Dates: start: 20081211, end: 20100503

REACTIONS (5)
  - BURNING SENSATION [None]
  - DYSURIA [None]
  - LEUKOCYTOSIS [None]
  - PYREXIA [None]
  - URINARY TRACT INFECTION [None]
